FAERS Safety Report 14097338 (Version 1)
Quarter: 2017Q4

REPORT INFORMATION
  Report Type: Spontaneous
  Country: US (occurrence: US)
  Receive Date: 20171016
  Receipt Date: 20171016
  Transmission Date: 20180321
  Serious: No
  Sender: FDA-Public Use
  Company Number: None

PATIENT
  Age: 59 Year
  Weight: 54.45 kg

DRUGS (13)
  1. ALBUTEROL. [Concomitant]
     Active Substance: ALBUTEROL
  2. PANTHOTHETIC ACID [Concomitant]
  3. POTASSIUM/MAGESIUM/CALCIUM [Concomitant]
  4. ZOLPIDEM [Suspect]
     Active Substance: ZOLPIDEM\ZOLPIDEM TARTRATE
     Indication: INSOMNIA
     Dosage: ?          QUANTITY:30 TABLET(S);?
     Route: 048
     Dates: start: 20171012, end: 20171015
  5. BIOTIN OLIVE LEAF EXTRACT [Concomitant]
  6. THYROID [Concomitant]
     Active Substance: LEVOTHYROXINE\LIOTHYRONINE
  7. MALIC ACID [Concomitant]
     Active Substance: MALIC ACID
  8. VITAMIN C [Concomitant]
     Active Substance: ASCORBIC ACID
  9. VITAMIN D [Concomitant]
     Active Substance: CHOLECALCIFEROL
  10. QVAR [Concomitant]
     Active Substance: BECLOMETHASONE DIPROPIONATE
  11. ERYPED [Concomitant]
     Active Substance: ERYTHROMYCIN ETHYLSUCCINATE
  12. VITAMIN B1/B12 [Concomitant]
  13. DIAZEPAM. [Concomitant]
     Active Substance: DIAZEPAM

REACTIONS (7)
  - Insomnia [None]
  - Feeling abnormal [None]
  - Middle insomnia [None]
  - Drug ineffective [None]
  - Nausea [None]
  - Migraine [None]
  - Restless legs syndrome [None]

NARRATIVE: CASE EVENT DATE: 20171013
